FAERS Safety Report 15026862 (Version 1)
Quarter: 2018Q2

REPORT INFORMATION
  Report Type: Spontaneous
  Country: US (occurrence: US)
  Receive Date: 20180619
  Receipt Date: 20180619
  Transmission Date: 20180711
  Serious: No
  Sender: FDA-Public Use
  Company Number: US-ORCHID HEALTHCARE-2049589

PATIENT

DRUGS (1)
  1. ESZOPICLONE. [Suspect]
     Active Substance: ESZOPICLONE
     Route: 065

REACTIONS (1)
  - Drug ineffective [Not Recovered/Not Resolved]
